FAERS Safety Report 4708777-2 (Version None)
Quarter: 2005Q3

REPORT INFORMATION
  Report Type: 
  Country: None (occurrence: None)
  Receive Date: 20050707
  Receipt Date: 20050425
  Transmission Date: 20060218
  Serious: Yes (Other)
  Sender: FDA-Public Use
  Company Number: GBWYE620526APR05

PATIENT
  Sex: Female

DRUGS (7)
  1. ENBREL [Suspect]
     Indication: RHEUMATOID ARTHRITIS
     Dosage: 25 MG, FREQUENCY UNKNOWN
     Route: 058
     Dates: start: 20050414
  2. HUMIRA [Concomitant]
     Dosage: UNKNOWN
  3. CODEINE PHOSPHATE [Concomitant]
     Dosage: UNKNOWN
  4. DICLOFENAC SODIUM [Concomitant]
     Dosage: UNKNOWN
  5. LOPERAMIDE [Concomitant]
     Dosage: UNKNOWN
  6. OMEPRAZOLE [Concomitant]
     Dosage: UNKNOWN
  7. LEVOTHYROXINE [Concomitant]
     Dosage: UNKNOWN

REACTIONS (1)
  - DEEP VEIN THROMBOSIS [None]
